FAERS Safety Report 25505082 (Version 1)
Quarter: 2025Q3

REPORT INFORMATION
  Report Type: Spontaneous
  Country: US (occurrence: US)
  Receive Date: 20250702
  Receipt Date: 20250702
  Transmission Date: 20251021
  Serious: No
  Sender: SAREPTA THERAPEUTICS
  Company Number: US-SAREPTA THERAPEUTICS INC.-SRP2024-005115

PATIENT
  Age: 11 Year
  Sex: Male
  Weight: 42.9 kg

DRUGS (2)
  1. EXONDYS 51 [Suspect]
     Active Substance: ETEPLIRSEN
     Indication: Muscular dystrophy
     Route: 042
     Dates: end: 20240926
  2. EXONDYS 51 [Suspect]
     Active Substance: ETEPLIRSEN
     Route: 042
     Dates: start: 20241001

REACTIONS (3)
  - Catheter site erythema [Recovered/Resolved]
  - Catheter site pain [Recovered/Resolved]
  - Catheter site scar [Unknown]

NARRATIVE: CASE EVENT DATE: 20240926
